FAERS Safety Report 25346120 (Version 1)
Quarter: 2025Q2

REPORT INFORMATION
  Report Type: Report from Study
  Country: US (occurrence: US)
  Receive Date: 20250522
  Receipt Date: 20250522
  Transmission Date: 20250716
  Serious: Yes (Other)
  Sender: ABBVIE
  Company Number: US-ABBVIE-6199600

PATIENT
  Age: 63 Year
  Sex: Female

DRUGS (2)
  1. RINVOQ [Suspect]
     Active Substance: UPADACITINIB
     Indication: Rheumatoid arthritis
     Route: 048
     Dates: start: 20241204
  2. RINVOQ [Suspect]
     Active Substance: UPADACITINIB
     Indication: Rheumatoid arthritis
     Route: 048
     Dates: start: 20250225

REACTIONS (6)
  - Lung neoplasm malignant [Unknown]
  - Lung disorder [Recovering/Resolving]
  - Pneumonia [Recovering/Resolving]
  - Sunburn [Unknown]
  - Cellulitis [Unknown]
  - Burn oedema [Unknown]

NARRATIVE: CASE EVENT DATE: 20250315
